FAERS Safety Report 7574031-7 (Version None)
Quarter: 2011Q2

REPORT INFORMATION
  Report Type: 
  Country: None (occurrence: None)
  Receive Date: 20110621
  Receipt Date: 20110616
  Transmission Date: 20111010
  Serious: Yes (Other)
  Sender: FDA-Public Use
  Company Number: 2011SP028262

PATIENT
  Sex: Male

DRUGS (1)
  1. SAPHRIS [Suspect]
     Indication: SCHIZOPHRENIA
     Dosage: 5 MG;
     Dates: start: 20110602, end: 20110609

REACTIONS (1)
  - EPISTAXIS [None]
